FAERS Safety Report 24578528 (Version 1)
Quarter: 2024Q4

REPORT INFORMATION
  Report Type: Spontaneous
  Country: DE (occurrence: DE)
  Receive Date: 20241105
  Receipt Date: 20241105
  Transmission Date: 20250115
  Serious: Yes (Hospitalization, Other)
  Sender: BEIGENE
  Company Number: DE-AUROBINDO-AUR-APL-2024-024236

PATIENT

DRUGS (4)
  1. TEVIMBRA [Suspect]
     Active Substance: TISLELIZUMAB-JSGR
     Indication: Oesophageal adenocarcinoma
  2. LEUCOVORIN [Suspect]
     Active Substance: LEUCOVORIN\LEUCOVORIN CALCIUM
     Indication: Oesophageal adenocarcinoma
  3. FLUOROURACIL [Suspect]
     Active Substance: FLUOROURACIL
     Indication: Oesophageal adenocarcinoma
  4. OXALIPLATIN [Suspect]
     Active Substance: OXALIPLATIN
     Indication: Oesophageal adenocarcinoma

REACTIONS (3)
  - C-reactive protein increased [Unknown]
  - Pyrexia [Unknown]
  - Infection [Unknown]

NARRATIVE: CASE EVENT DATE: 20240219
